FAERS Safety Report 16987155 (Version 1)
Quarter: 2019Q4

REPORT INFORMATION
  Report Type: Report from Study
  Country: GB (occurrence: GB)
  Receive Date: 20191104
  Receipt Date: 20191104
  Transmission Date: 20200122
  Serious: Yes (Hospitalization)
  Sender: FDA-Public Use
  Company Number: GB-CELLTRION INC.-2019GB025074

PATIENT

DRUGS (21)
  1. TRUXIMA [Suspect]
     Active Substance: RITUXIMAB-ABBS
     Dosage: R CHOP CYCLE 4
     Dates: start: 20180418
  2. CHOP [Suspect]
     Active Substance: CYCLOPHOSPHAMIDE\DOXORUBICIN\PREDNISONE\VINCRISTINE
     Indication: DIFFUSE LARGE B-CELL LYMPHOMA
     Dosage: R-CHOP STARTED (CYCLE 1)
     Dates: start: 20180215
  3. CHOP [Suspect]
     Active Substance: CYCLOPHOSPHAMIDE\DOXORUBICIN\PREDNISONE\VINCRISTINE
     Dosage: R-CHOP CYCLE 5
     Dates: start: 20180509
  4. FLUCONAZOLE. [Concomitant]
     Active Substance: FLUCONAZOLE
     Dosage: 50 MG, OD
  5. CHOP [Suspect]
     Active Substance: CYCLOPHOSPHAMIDE\DOXORUBICIN\PREDNISONE\VINCRISTINE
     Dosage: R-CHOP CYCLE 3
     Dates: start: 20180328
  6. CHOP [Suspect]
     Active Substance: CYCLOPHOSPHAMIDE\DOXORUBICIN\PREDNISONE\VINCRISTINE
     Dosage: R-CHOP CYCLE 4
     Dates: start: 20180418
  7. COCODAMOL [Concomitant]
     Active Substance: ACETAMINOPHEN\CODEINE PHOSPHATE
     Dosage: 8/500 1-2 TABS QDS
  8. FILGRASTIM-GCSF [Concomitant]
     Dosage: 300 MICROGRAM (DAY 6 - 7)
  9. TRUXIMA [Suspect]
     Active Substance: RITUXIMAB-ABBS
     Dosage: R CHOP CYCLE 6
     Dates: start: 20180530
  10. ACICLOVIR [Concomitant]
     Active Substance: ACYCLOVIR
     Dosage: 400 MG, TDS
     Dates: start: 20180227
  11. DOMPERIDONE [Concomitant]
     Active Substance: DOMPERIDONE
     Dosage: 10 MG, PRN
  12. TRUXIMA [Suspect]
     Active Substance: RITUXIMAB-ABBS
     Dosage: R CHOP CYCLE 3
     Dates: start: 20180328
  13. CHOP [Suspect]
     Active Substance: CYCLOPHOSPHAMIDE\DOXORUBICIN\PREDNISONE\VINCRISTINE
     Dosage: R-CHOP CYCLE 2
     Dates: start: 20180307
  14. ALLOPURINOL. [Concomitant]
     Active Substance: ALLOPURINOL
     Dosage: 300 MG, DAILY
     Route: 048
  15. PENTAMIDINE [Concomitant]
     Active Substance: PENTAMIDINE
     Dosage: UNK
     Dates: start: 20180216
  16. TRUXIMA [Suspect]
     Active Substance: RITUXIMAB-ABBS
     Indication: DIFFUSE LARGE B-CELL LYMPHOMA
     Dosage: 600 MILLIGRAM
     Route: 042
     Dates: start: 20180215, end: 20180530
  17. TRUXIMA [Suspect]
     Active Substance: RITUXIMAB-ABBS
     Dosage: R CHOP CYCLE 2
     Dates: start: 20180307
  18. TRUXIMA [Suspect]
     Active Substance: RITUXIMAB-ABBS
     Dosage: R CHOP CYCLE 5
     Dates: start: 20180509
  19. CHOP [Suspect]
     Active Substance: CYCLOPHOSPHAMIDE\DOXORUBICIN\PREDNISONE\VINCRISTINE
     Dosage: R-CHOP CYCLE 6
     Dates: start: 20180530
  20. RANITIDINE. [Concomitant]
     Active Substance: RANITIDINE
     Dosage: 150 MG BD
     Dates: start: 20180227
  21. DOMPERIDONE [Concomitant]
     Active Substance: DOMPERIDONE
     Dosage: 10 MG (DAYS 5-10)
     Dates: start: 20180227

REACTIONS (3)
  - Vomiting [Recovered/Resolved]
  - Overdose [Unknown]
  - Neutropenic sepsis [Recovered/Resolved]

NARRATIVE: CASE EVENT DATE: 20180222
